FAERS Safety Report 16026806 (Version 2)
Quarter: 2019Q1

REPORT INFORMATION
  Report Type: Report from Study
  Country: CA (occurrence: CA)
  Receive Date: 20190303
  Receipt Date: 20190311
  Transmission Date: 20190418
  Serious: Yes (Death, Hospitalization)
  Sender: FDA-Public Use
  Company Number: PHHY2019CA046876

PATIENT
  Sex: Female

DRUGS (1)
  1. KISQALI [Suspect]
     Active Substance: RIBOCICLIB
     Indication: BREAST CANCER METASTATIC
     Dosage: 600 MG, UNK
     Route: 048
     Dates: start: 20190201, end: 20190219

REACTIONS (5)
  - Respiratory symptom [Fatal]
  - Breast cancer metastatic [Fatal]
  - Pneumonia [Fatal]
  - Lymphangiosis carcinomatosa [Fatal]
  - Respiratory failure [Fatal]
